FAERS Safety Report 9492752 (Version 1)
Quarter: 2013Q3

REPORT INFORMATION
  Report Type: Spontaneous
  Country: US (occurrence: US)
  Receive Date: 20130830
  Receipt Date: 20130830
  Transmission Date: 20140515
  Serious: Yes (Other)
  Sender: FDA-Public Use
  Company Number: US-GLAXOSMITHKLINE-A1039141A

PATIENT
  Age: 69 Year
  Sex: Male

DRUGS (22)
  1. ADVAIR [Suspect]
     Indication: EMPHYSEMA
     Dosage: 1PUFF TWICE PER DAY
     Route: 055
  2. ACYCLOVIR [Suspect]
     Indication: HERPES ZOSTER
     Dosage: 800MG FIVE TIMES PER DAY
     Route: 048
     Dates: start: 2013, end: 2013
  3. BLOOD PRESSURE MEDICATION [Concomitant]
  4. FUROSEMIDE [Concomitant]
  5. SPIRIVA [Concomitant]
  6. PRO-AIR [Concomitant]
  7. FISH OIL [Concomitant]
  8. METFORMIN [Concomitant]
  9. METOPROLOL TARTRATE [Concomitant]
  10. ASPIRIN [Concomitant]
  11. COMBIVENT [Concomitant]
  12. GEMFIBROZIL [Concomitant]
  13. FAMOTIDINE [Concomitant]
  14. POTASSIUM [Concomitant]
  15. THEOPHYLLINE [Concomitant]
  16. LANTUS [Concomitant]
  17. VICODIN [Concomitant]
  18. VITAMIN E [Concomitant]
  19. VITAMIN D [Concomitant]
  20. SIMVASTATIN [Concomitant]
  21. CHROMIUM [Concomitant]
  22. ALBUTEROL [Concomitant]

REACTIONS (6)
  - Shoulder operation [Unknown]
  - Herpes zoster [Not Recovered/Not Resolved]
  - Gout [Recovered/Resolved]
  - Confusional state [Not Recovered/Not Resolved]
  - Extra dose administered [Unknown]
  - Treatment noncompliance [Unknown]
